FAERS Safety Report 5394841-4 (Version None)
Quarter: 2007Q3

REPORT INFORMATION
  Report Type: 
  Country: None (occurrence: None)
  Receive Date: 20070723
  Receipt Date: 20070713
  Transmission Date: 20080115
  Serious: Yes (Hospitalization)
  Sender: FDA-Public Use
  Company Number: AT-ABBOTT-07P-009-0373449-00

PATIENT
  Age: 55 Year
  Sex: Female

DRUGS (10)
  1. HUMIRA [Suspect]
     Indication: RHEUMATOID ARTHRITIS
     Route: 058
     Dates: start: 20060616
  2. HUMIRA [Suspect]
     Route: 058
     Dates: end: 20061228
  3. COMBI THYREX MITE [Concomitant]
     Indication: HYPOTHYROIDISM
     Route: 048
     Dates: start: 20050401
  4. FORESTO [Concomitant]
     Indication: OSTEOPOROSIS
     Route: 058
     Dates: start: 20051101
  5. KRALLENDORN [Concomitant]
     Indication: RHEUMATOID ARTHRITIS
     Route: 048
     Dates: start: 20040101, end: 20061228
  6. PAROXETINE [Concomitant]
     Indication: DEPRESSION
     Route: 048
     Dates: start: 20040101, end: 20061228
  7. CAL D VITA [Concomitant]
     Indication: OSTEOPOROSIS
     Route: 048
     Dates: start: 20051021
  8. LORNOXICAM [Concomitant]
     Indication: RHEUMATOID ARTHRITIS
     Route: 048
     Dates: start: 20010101
  9. APREDNISOLON [Concomitant]
     Indication: RHEUMATOID ARTHRITIS
     Route: 048
     Dates: start: 20060912
  10. ETANERCEPT [Concomitant]
     Indication: RHEUMATOID ARTHRITIS
     Route: 058
     Dates: start: 20061001

REACTIONS (3)
  - METATARSAL EXCISION [None]
  - OSTEOARTHRITIS [None]
  - SURGERY [None]
